FAERS Safety Report 6354333-2 (Version None)
Quarter: 2009Q3

REPORT INFORMATION
  Report Type: 
  Country: None (occurrence: None)
  Receive Date: 20090914
  Receipt Date: 20090908
  Transmission Date: 20100115
  Serious: Yes (Other)
  Sender: FDA-Public Use
  Company Number: US-BAYER-200932360NA

PATIENT
  Sex: Female

DRUGS (1)
  1. AVELOX [Suspect]
     Indication: UPPER RESPIRATORY TRACT INFECTION
     Dates: start: 20090904

REACTIONS (6)
  - ASTHENIA [None]
  - DRY MOUTH [None]
  - NAUSEA [None]
  - SKIN HYPERTROPHY [None]
  - SWELLING FACE [None]
  - TREMOR [None]
